FAERS Safety Report 8602612-8 (Version None)
Quarter: 2012Q3

REPORT INFORMATION
  Report Type: 
  Country: None (occurrence: None)
  Receive Date: 20120817
  Receipt Date: 20120814
  Transmission Date: 20120928
  Serious: Yes (Hospitalization)
  Sender: FDA-Public Use
  Company Number: PHEH2012US015977

PATIENT
  Sex: Female
  Weight: 65.771 kg

DRUGS (1)
  1. DIOVAN HCT [Suspect]
     Dosage: 1 DF (320 MG/?), QD

REACTIONS (1)
  - CHOLECYSTITIS INFECTIVE [None]
